FAERS Safety Report 20376779 (Version 2)
Quarter: 2022Q1

REPORT INFORMATION
  Report Type: Report from Study
  Country: US (occurrence: None)
  Receive Date: 20220125
  Receipt Date: 20220128
  Transmission Date: 20220423
  Serious: Yes (Hospitalization)
  Sender: FDA-Public Use
  Company Number: US-Eisai Medical Research-EC-2022-107264

PATIENT
  Age: 66 Year
  Sex: Female

DRUGS (3)
  1. LENVIMA [Suspect]
     Active Substance: LENVATINIB
     Indication: Lung neoplasm malignant
     Route: 048
     Dates: start: 20211016, end: 202111
  2. LENVIMA [Suspect]
     Active Substance: LENVATINIB
     Indication: Bronchial carcinoma
     Route: 048
     Dates: start: 2021, end: 20211222
  3. LENVIMA [Suspect]
     Active Substance: LENVATINIB
     Route: 048
     Dates: start: 20211223, end: 202201

REACTIONS (4)
  - Cerebrovascular accident [Unknown]
  - Rash [Unknown]
  - Oral mucosal eruption [Unknown]
  - Dizziness [Unknown]

NARRATIVE: CASE EVENT DATE: 20220101
